FAERS Safety Report 14419149 (Version 1)
Quarter: 2018Q1

REPORT INFORMATION
  Report Type: Spontaneous
  Country: US (occurrence: US)
  Receive Date: 20180122
  Receipt Date: 20180122
  Transmission Date: 20180509
  Serious: Yes (Other)
  Sender: FDA-Public Use
  Company Number: US-BAYER-2018-009609

PATIENT
  Age: 27 Year
  Sex: Female

DRUGS (2)
  1. CALCIUM CARBONATE. [Suspect]
     Active Substance: CALCIUM CARBONATE
     Indication: HYPOAESTHESIA ORAL
     Dosage: UNK
  2. CALCIUM CARBONATE. [Suspect]
     Active Substance: CALCIUM CARBONATE
     Indication: FATIGUE

REACTIONS (12)
  - Acute kidney injury [None]
  - Pyrexia [None]
  - Overdose [None]
  - Pancreatitis [None]
  - Hypercalcaemia [None]
  - Haemoglobin decreased [None]
  - Platelet count decreased [None]
  - Haemolytic anaemia [None]
  - Red blood cell schistocytes present [None]
  - Milk-alkali syndrome [None]
  - Thrombocytopenic purpura [None]
  - Product use in unapproved indication [None]
